FAERS Safety Report 26149143 (Version 1)
Quarter: 2025Q4

REPORT INFORMATION
  Report Type: Spontaneous
  Country: CA (occurrence: CA)
  Receive Date: 20251212
  Receipt Date: 20251212
  Transmission Date: 20260118
  Serious: Yes (Death, Life-Threatening, Hospitalization, Disabling, Other)
  Sender: Haleon PLC
  Company Number: CA-HALEON-2278359

PATIENT
  Age: 44 Year
  Sex: Female

DRUGS (306)
  1. DICLOFENAC [Suspect]
     Active Substance: DICLOFENAC
     Indication: Product used for unknown indication
     Dosage: PATIENT ROA: UNKNOWN
  2. DICLOFENAC [Suspect]
     Active Substance: DICLOFENAC
     Dosage: DOSE FORM: UNKNOWN, PATIENT ROA: OPHTHALMIC
  3. ADVIL [Suspect]
     Active Substance: IBUPROFEN
     Indication: Product used for unknown indication
     Dosage: PATIENT ROA: UNKNOWN
  4. DICLOFENAC DIETHYLAMINE [Suspect]
     Active Substance: DICLOFENAC DIETHYLAMINE
     Indication: Product used for unknown indication
     Dosage: PATIENT ROA: UNKNOWN
  5. DICLOFENAC DIETHYLAMINE [Suspect]
     Active Substance: DICLOFENAC DIETHYLAMINE
     Dosage: PATIENT ROA: UNKNOWN
  6. ACETAMINOPHEN [Suspect]
     Active Substance: ACETAMINOPHEN
     Indication: Product used for unknown indication
     Dosage: DOSE FORM: UNKNOWN PATIENT ROA: UNKNOWN
  7. ACETAMINOPHEN [Suspect]
     Active Substance: ACETAMINOPHEN
     Dosage: DOSE FORM: UNKNOWN PATIENT ROA: UNKNOWN
  8. ACETAMINOPHEN [Suspect]
     Active Substance: ACETAMINOPHEN
     Dosage: PATIENT ROA: UNKNOWN
  9. ACETAMINOPHEN\CAFFEINE\CODEINE PHOSPHATE [Suspect]
     Active Substance: ACETAMINOPHEN\CAFFEINE\CODEINE PHOSPHATE
     Indication: Product used for unknown indication
     Dosage: PATIENT ROA: UNKNOWN
  10. COSENTYX [Suspect]
     Active Substance: SECUKINUMAB
     Indication: Product used for unknown indication
  11. DESOXIMETASONE [Suspect]
     Active Substance: DESOXIMETASONE
     Indication: Product used for unknown indication
     Dosage: PATIENT ROA: UNKNOWN
  12. DEXTROMETHORPHAN HYDROBROMIDE\PSEUDOEPHEDRINE HYDROCHLORIDE\TRIPROLIDI [Suspect]
     Active Substance: DEXTROMETHORPHAN HYDROBROMIDE\PSEUDOEPHEDRINE HYDROCHLORIDE\TRIPROLIDINE HYDROCHLORIDE
     Indication: Product used for unknown indication
     Dosage: PATIENT ROA: UNKNOWN
  13. HUMIRA [Suspect]
     Active Substance: ADALIMUMAB
     Indication: Rheumatoid arthritis
  14. HUMIRA [Suspect]
     Active Substance: ADALIMUMAB
     Indication: Psoriatic arthropathy
  15. HUMIRA [Suspect]
     Active Substance: ADALIMUMAB
  16. HUMIRA [Suspect]
     Active Substance: ADALIMUMAB
  17. HYDROCORTISONE BUTYRATE [Suspect]
     Active Substance: HYDROCORTISONE BUTYRATE
     Indication: Rheumatoid arthritis
  18. HYDROCORTISONE BUTYRATE [Suspect]
     Active Substance: HYDROCORTISONE BUTYRATE
     Dosage: PATIENT ROA: OTHER
  19. HYDROCORTISONE BUTYRATE [Suspect]
     Active Substance: HYDROCORTISONE BUTYRATE
  20. HYDROCORTISONE SODIUM SUCCINATE [Suspect]
     Active Substance: HYDROCORTISONE SODIUM SUCCINATE
     Indication: Rheumatoid arthritis
     Dosage: PATIENT ROA: UNKNOWN
  21. LISINOPRIL [Suspect]
     Active Substance: LISINOPRIL
     Indication: Product used for unknown indication
     Dosage: PATIENT ROA: UNKNOWN
  22. MESALAMINE [Suspect]
     Active Substance: MESALAMINE
     Indication: Product used for unknown indication
     Dosage: DOSE FORM: TABLET (DELAYED AND EXTENDED RELEASE) PATIENT ROA: UNKNOWN
  23. NAPROXEN [Suspect]
     Active Substance: NAPROXEN
     Indication: Product used for unknown indication
     Dosage: PATIENT ROA: UNKNOWN
  24. NAPROXEN SODIUM [Suspect]
     Active Substance: NAPROXEN SODIUM
     Indication: Rheumatoid arthritis
     Dosage: PATIENT ROA: UNKNOWN
  25. NAPROXEN SODIUM [Suspect]
     Active Substance: NAPROXEN SODIUM
     Dosage: PATIENT ROA: UNKNOWN
  26. NEOMYCIN [Suspect]
     Active Substance: NEOMYCIN
     Indication: Product used for unknown indication
     Dosage: PATIENT ROA: UNKNOWN
  27. OTEZLA [Suspect]
     Active Substance: APREMILAST
     Indication: Product used for unknown indication
     Dosage: PATIENT ROA: UNKNOWN
  28. OXYCODONE [Suspect]
     Active Substance: OXYCODONE
     Indication: Product used for unknown indication
     Dosage: DOSE FORM: UNKNOWN
  29. OXYCODONE [Suspect]
     Active Substance: OXYCODONE
     Dosage: DOSE FORM: UNKNOWN PATIENT ROA: UNKNOWN
  30. OXYCODONE [Suspect]
     Active Substance: OXYCODONE
     Dosage: PATIENT ROA: UNKNOWN
  31. OXYCODONE [Suspect]
     Active Substance: OXYCODONE
     Dosage: DOSE FORM: UNKNOWN PATIENT ROA: UNKNOWN
  32. PHTHALYLSULFATHIAZOLE [Suspect]
     Active Substance: PHTHALYLSULFATHIAZOLE
     Indication: Rheumatoid arthritis
     Dosage: PATIENT ROA: INTRAVENOUS DRIP
  33. PHTHALYLSULFATHIAZOLE [Suspect]
     Active Substance: PHTHALYLSULFATHIAZOLE
  34. PHTHALYLSULFATHIAZOLE [Suspect]
     Active Substance: PHTHALYLSULFATHIAZOLE
     Dosage: PATIENT ROA: UNKNOWN
  35. PHTHALYLSULFATHIAZOLE [Suspect]
     Active Substance: PHTHALYLSULFATHIAZOLE
     Dosage: PATIENT ROA: INTRAVENOUS DRIP
  36. PHTHALYLSULFATHIAZOLE [Suspect]
     Active Substance: PHTHALYLSULFATHIAZOLE
     Dosage: PATIENT ROA: UNKNOWN
  37. PHTHALYLSULFATHIAZOLE [Suspect]
     Active Substance: PHTHALYLSULFATHIAZOLE
  38. PHTHALYLSULFATHIAZOLE [Suspect]
     Active Substance: PHTHALYLSULFATHIAZOLE
  39. PHTHALYLSULFATHIAZOLE [Suspect]
     Active Substance: PHTHALYLSULFATHIAZOLE
     Dosage: PATIENT ROA: UNKNOWN
  40. PHTHALYLSULFATHIAZOLE [Suspect]
     Active Substance: PHTHALYLSULFATHIAZOLE
  41. PHTHALYLSULFATHIAZOLE [Suspect]
     Active Substance: PHTHALYLSULFATHIAZOLE
  42. PHTHALYLSULFATHIAZOLE [Suspect]
     Active Substance: PHTHALYLSULFATHIAZOLE
     Dosage: PATIENT ROA: UNKNOWN
  43. PHTHALYLSULFATHIAZOLE [Suspect]
     Active Substance: PHTHALYLSULFATHIAZOLE
  44. PHTHALYLSULFATHIAZOLE [Suspect]
     Active Substance: PHTHALYLSULFATHIAZOLE
  45. PHTHALYLSULFATHIAZOLE [Suspect]
     Active Substance: PHTHALYLSULFATHIAZOLE
  46. PHTHALYLSULFATHIAZOLE [Suspect]
     Active Substance: PHTHALYLSULFATHIAZOLE
  47. PHTHALYLSULFATHIAZOLE [Suspect]
     Active Substance: PHTHALYLSULFATHIAZOLE
  48. PHTHALYLSULFATHIAZOLE [Suspect]
     Active Substance: PHTHALYLSULFATHIAZOLE
  49. PHTHALYLSULFATHIAZOLE [Suspect]
     Active Substance: PHTHALYLSULFATHIAZOLE
  50. PREDNISONE [Suspect]
     Active Substance: PREDNISONE
     Indication: Systemic lupus erythematosus
  51. PREDNISONE [Suspect]
     Active Substance: PREDNISONE
     Indication: Synovitis
  52. PREDNISONE [Suspect]
     Active Substance: PREDNISONE
     Indication: Rheumatoid arthritis
  53. PREDNISONE [Suspect]
     Active Substance: PREDNISONE
     Indication: Psoriatic arthropathy
  54. PREDNISONE [Suspect]
     Active Substance: PREDNISONE
     Indication: Pemphigus
  55. PREDNISONE [Suspect]
     Active Substance: PREDNISONE
     Indication: Condition aggravated
  56. PREDNISONE [Suspect]
     Active Substance: PREDNISONE
     Indication: Systemic lupus erythematosus
     Dosage: PATIENT ROA: UNKNOWN
  57. PREDNISONE [Suspect]
     Active Substance: PREDNISONE
     Indication: Synovitis
  58. PREDNISONE [Suspect]
     Active Substance: PREDNISONE
     Indication: Rheumatoid arthritis
     Dosage: PATIENT ROA: UNKNOWN
  59. PREDNISONE [Suspect]
     Active Substance: PREDNISONE
     Indication: Psoriatic arthropathy
  60. PREDNISONE [Suspect]
     Active Substance: PREDNISONE
     Indication: Pemphigus
     Dosage: PATIENT ROA: INTRAVENOUS DRIP
  61. PREDNISONE [Suspect]
     Active Substance: PREDNISONE
     Indication: Condition aggravated
  62. PREDNISONE [Suspect]
     Active Substance: PREDNISONE
  63. PREDNISONE [Suspect]
     Active Substance: PREDNISONE
     Dosage: PATIENT ROA: UNKNOWN
  64. PREDNISONE [Suspect]
     Active Substance: PREDNISONE
     Dosage: PATIENT ROA: UNKNOWN
  65. PREDNISONE [Suspect]
     Active Substance: PREDNISONE
     Dosage: PATIENT ROA: UNKNOWN
  66. PREDNISONE [Suspect]
     Active Substance: PREDNISONE
     Dosage: PATIENT ROA: UNKNOWN
  67. PSEUDOEPHEDRINE HYDROCHLORIDE [Suspect]
     Active Substance: PSEUDOEPHEDRINE HYDROCHLORIDE
     Indication: Rheumatoid arthritis
     Dosage: PATIENT ROA: UNKNOWN
  68. PSEUDOEPHEDRINE HYDROCHLORIDE [Suspect]
     Active Substance: PSEUDOEPHEDRINE HYDROCHLORIDE
     Dosage: PATIENT ROA: UNKNOWN
  69. PSEUDOEPHEDRINE HYDROCHLORIDE [Suspect]
     Active Substance: PSEUDOEPHEDRINE HYDROCHLORIDE
     Dosage: PATIENT ROA: UNKNOWN
  70. REMICADE [Suspect]
     Active Substance: INFLIXIMAB
     Indication: Rheumatoid arthritis
     Dosage: DOSE FORM: POWDER FOR SOLUTION INTRAVENOUS PATIENT ROA: UNKNOWN
  71. RITUXIMAB [Suspect]
     Active Substance: RITUXIMAB
     Indication: Rheumatoid arthritis
     Dosage: PATIENT ROA: UNKNOWN
  72. RITUXIMAB [Suspect]
     Active Substance: RITUXIMAB
  73. RITUXIMAB [Suspect]
     Active Substance: RITUXIMAB
     Dosage: PATIENT ROA: INTRAVENOUS DRIP
  74. RITUXIMAB [Suspect]
     Active Substance: RITUXIMAB
     Dosage: PATIENT ROA: INTRAVENOUS DRIP
  75. RITUXIMAB [Suspect]
     Active Substance: RITUXIMAB
  76. RITUXIMAB [Suspect]
     Active Substance: RITUXIMAB
     Dosage: PATIENT ROA: INTRAVENOUS DRIP
  77. RITUXIMAB [Suspect]
     Active Substance: RITUXIMAB
     Dosage: PATIENT ROA: UNKNOWN
  78. RITUXIMAB [Suspect]
     Active Substance: RITUXIMAB
     Indication: Rheumatoid arthritis
     Dosage: PATIENT ROA: UNKNOWN
  79. DIETARY SUPPLEMENT\HERBALS [Suspect]
     Active Substance: DIETARY SUPPLEMENT\HERBALS
     Indication: Product used for unknown indication
     Dosage: DOSE FORM: DROPS ORAL PATIENT ROA: UNKNOWN
  80. APREMILAST [Suspect]
     Active Substance: APREMILAST
     Indication: Product used for unknown indication
     Dosage: PATIENT ROA: UNKNOWN
  81. DICLOFENAC SODIUM [Suspect]
     Active Substance: DICLOFENAC SODIUM
     Indication: Rheumatoid arthritis
  82. DICLOFENAC SODIUM [Suspect]
     Active Substance: DICLOFENAC SODIUM
     Dosage: PATIENT ROA: UNKNOWN
  83. DICLOFENAC SODIUM [Suspect]
     Active Substance: DICLOFENAC SODIUM
     Dosage: PATIENT ROA: UNKNOWN
  84. DICLOFENAC SODIUM [Suspect]
     Active Substance: DICLOFENAC SODIUM
     Dosage: PATIENT ROA: UNKNOWN
  85. DICLOFENAC SODIUM [Suspect]
     Active Substance: DICLOFENAC SODIUM
     Dosage: PATIENT ROA: OPHTHALMIC
  86. DICLOFENAC SODIUM [Suspect]
     Active Substance: DICLOFENAC SODIUM
     Dosage: PATIENT ROA: OPHTHALMIC
  87. DICLOFENAC SODIUM [Suspect]
     Active Substance: DICLOFENAC SODIUM
     Dosage: PATIENT ROA: UNKNOWN
  88. DICLOFENAC SODIUM [Suspect]
     Active Substance: DICLOFENAC SODIUM
  89. DICLOFENAC SODIUM [Suspect]
     Active Substance: DICLOFENAC SODIUM
  90. DICLOFENAC SODIUM [Suspect]
     Active Substance: DICLOFENAC SODIUM
     Dosage: PATIENT ROA: UNKNOWN
  91. DICLOFENAC SODIUM [Suspect]
     Active Substance: DICLOFENAC SODIUM
     Dosage: PATIENT ROA: UNKNOWN
  92. DICLOFENAC SODIUM [Suspect]
     Active Substance: DICLOFENAC SODIUM
     Dosage: PATIENT ROA: OTHER
  93. DICLOFENAC SODIUM [Suspect]
     Active Substance: DICLOFENAC SODIUM
     Dosage: PATIENT ROA: OPHTHALMIC
  94. DICLOFENAC SODIUM [Suspect]
     Active Substance: DICLOFENAC SODIUM
     Dosage: PATIENT ROA: OPHTHALMIC
  95. HYDROCORTISONE [Suspect]
     Active Substance: HYDROCORTISONE
     Indication: Rheumatoid arthritis
     Dosage: DOSE FORM: UNKNOWN PATIENT ROA: UNKNOWN
  96. HYDROCORTISONE [Suspect]
     Active Substance: HYDROCORTISONE
     Dosage: DOSE FORM: UNKNOWN
  97. HYDROCORTISONE [Suspect]
     Active Substance: HYDROCORTISONE
     Dosage: DOSE FORM: UNKNOWN PATIENT ROA: UNKNOWN
  98. HYDROCORTISONE [Suspect]
     Active Substance: HYDROCORTISONE
     Dosage: DOSE FORM: UNKNOWN
  99. HYDROCORTISONE [Suspect]
     Active Substance: HYDROCORTISONE
     Dosage: DOSE FORM: UNKNOWN PATIENT ROA: UNKNOWN
  100. HYDROCORTISONE [Suspect]
     Active Substance: HYDROCORTISONE
     Dosage: DOSE FORM: UNKNOWN PATIENT ROA: UNKNOWN
  101. MOXIFLOXACIN HYDROCHLORIDE [Suspect]
     Active Substance: MOXIFLOXACIN HYDROCHLORIDE
     Indication: Product used for unknown indication
     Dosage: DOSE FORM: SOLUTION OPHTHALMIC
  102. MYCOPHENOLATE MOFETIL [Suspect]
     Active Substance: MYCOPHENOLATE MOFETIL
     Indication: Product used for unknown indication
     Dosage: PATIENT ROA: UNKNOWN
  103. PANTOPRAZOLE SODIUM [Suspect]
     Active Substance: PANTOPRAZOLE SODIUM
     Indication: Product used for unknown indication
     Dosage: DOSE FORM: UNKNOWN
  104. PANTOPRAZOLE SODIUM [Suspect]
     Active Substance: PANTOPRAZOLE SODIUM
     Dosage: DOSE FORM: UNKNOWN PATIENT ROA: UNKNOWN
  105. SIMPONI [Suspect]
     Active Substance: GOLIMUMAB
     Indication: Rheumatoid arthritis
  106. SIMPONI [Suspect]
     Active Substance: GOLIMUMAB
  107. SIMPONI [Suspect]
     Active Substance: GOLIMUMAB
     Dosage: PATIENT ROA: UNKNOWN
  108. SIMPONI [Suspect]
     Active Substance: GOLIMUMAB
  109. STELARA [Suspect]
     Active Substance: USTEKINUMAB
     Indication: Product used for unknown indication
     Dosage: DOSE FORM: SOLUTION SUBCUTANEOUS PATIENT ROA: UNKNOWN
  110. SULFAMETHOXAZOLE [Suspect]
     Active Substance: SULFAMETHOXAZOLE
     Indication: Product used for unknown indication
  111. SULFAMETHOXAZOLE\TRIMETHOPRIM [Suspect]
     Active Substance: SULFAMETHOXAZOLE\TRIMETHOPRIM
     Indication: Product used for unknown indication
  112. SULFAMETHOXAZOLE\TRIMETHOPRIM [Suspect]
     Active Substance: SULFAMETHOXAZOLE\TRIMETHOPRIM
     Dosage: PATIENT ROA: UNKNOWN
  113. TRIAMCINOLONE ACETONIDE [Suspect]
     Active Substance: TRIAMCINOLONE ACETONIDE
     Indication: Rheumatoid arthritis
     Dosage: DOSE FORM: SUSPENSION INTRA- ARTICULAR
  114. VITAMIN C [Suspect]
     Active Substance: ASCORBIC ACID
     Indication: Product used for unknown indication
     Dosage: PATIENT ROA: UNKNOWN
  115. VITAMIN C [Suspect]
     Active Substance: ASCORBIC ACID
     Dosage: PATIENT ROA: UNKNOWN
  116. ACTEMRA [Suspect]
     Active Substance: TOCILIZUMAB
     Indication: Product used for unknown indication
     Dosage: PATIENT ROA: UNKNOWN
  117. ALENDRONATE SODIUM [Suspect]
     Active Substance: ALENDRONATE SODIUM
     Indication: Product used for unknown indication
     Dosage: DOSE FORM: UNKNOWN PATIENT ROA: UNKNOWN
  118. ALENDRONATE SODIUM [Suspect]
     Active Substance: ALENDRONATE SODIUM
     Dosage: PATIENT ROA: UNKNOWN
  119. ALENDRONATE SODIUM [Suspect]
     Active Substance: ALENDRONATE SODIUM
     Indication: Product used for unknown indication
     Dosage: PATIENT ROA: UNKNOWN
  120. BORAGE OIL [Suspect]
     Active Substance: BORAGE OIL
     Indication: Product used for unknown indication
     Dosage: PATIENT ROA: UNKNOWN
  121. CELEBREX [Suspect]
     Active Substance: CELECOXIB
     Indication: Product used for unknown indication
     Dosage: PATIENT ROA: UNKNOWN
  122. CETIRIZINE [Suspect]
     Active Substance: CETIRIZINE HYDROCHLORIDE
     Indication: Product used for unknown indication
     Dosage: PATIENT ROA: UNKNOWN
  123. CETIRIZINE HYDROCHLORIDE [Suspect]
     Active Substance: CETIRIZINE HYDROCHLORIDE
     Indication: Product used for unknown indication
     Dosage: PATIENT ROA: UNKNOWN
  124. COSENTYX [Suspect]
     Active Substance: SECUKINUMAB
     Indication: Product used for unknown indication
     Dosage: PATIENT ROA: UNKNOWN
  125. HUMIRA [Suspect]
     Active Substance: ADALIMUMAB
     Indication: Rheumatoid arthritis
     Dosage: DOSE FORM: SOLUTION SUBCUTANEOUS
  126. HUMIRA [Suspect]
     Active Substance: ADALIMUMAB
     Indication: Psoriatic arthropathy
  127. HYDROCORTISONE ACETATE [Suspect]
     Active Substance: HYDROCORTISONE ACETATE
     Indication: Product used for unknown indication
     Dosage: PATIENT ROA: UNKNOWN
  128. HYDROCORTISONE SODIUM SUCCINATE [Suspect]
     Active Substance: HYDROCORTISONE SODIUM SUCCINATE
     Indication: Rheumatoid arthritis
     Dosage: DOSE FORM: POWDER FOR SOLUTION
  129. HYDROXYCHLOROQUINE [Suspect]
     Active Substance: HYDROXYCHLOROQUINE
     Indication: Rheumatoid arthritis
  130. HYDROXYCHLOROQUINE [Suspect]
     Active Substance: HYDROXYCHLOROQUINE
  131. HYDROXYCHLOROQUINE [Suspect]
     Active Substance: HYDROXYCHLOROQUINE
  132. HYDROXYCHLOROQUINE [Suspect]
     Active Substance: HYDROXYCHLOROQUINE
     Dosage: PATIENT ROA: UNKNOWN
  133. HYDROXYCHLOROQUINE [Suspect]
     Active Substance: HYDROXYCHLOROQUINE
     Dosage: PATIENT ROA: UNKNOWN
  134. HYDROXYCHLOROQUINE [Suspect]
     Active Substance: HYDROXYCHLOROQUINE
     Dosage: PATIENT ROA: UNKNOWN
  135. HYDROXYCHLOROQUINE [Suspect]
     Active Substance: HYDROXYCHLOROQUINE
  136. HYDROXYCHLOROQUINE [Suspect]
     Active Substance: HYDROXYCHLOROQUINE
     Dosage: PATIENT ROA: UNKNOWN
  137. HYDROXYCHLOROQUINE SULFATE [Suspect]
     Active Substance: HYDROXYCHLOROQUINE SULFATE
     Indication: Systemic lupus erythematosus
  138. HYDROXYCHLOROQUINE SULFATE [Suspect]
     Active Substance: HYDROXYCHLOROQUINE SULFATE
     Indication: Rheumatoid arthritis
  139. HYDROXYCHLOROQUINE SULFATE [Suspect]
     Active Substance: HYDROXYCHLOROQUINE SULFATE
     Dosage: PATIENT ROA: UNKNOWN
  140. HYDROXYCHLOROQUINE SULFATE [Suspect]
     Active Substance: HYDROXYCHLOROQUINE SULFATE
     Dosage: PATIENT ROA: UNKNOWN
  141. HYDROXYCHLOROQUINE SULFATE [Suspect]
     Active Substance: HYDROXYCHLOROQUINE SULFATE
  142. HYDROXYCHLOROQUINE SULFATE [Suspect]
     Active Substance: HYDROXYCHLOROQUINE SULFATE
  143. HYDROXYCHLOROQUINE SULFATE [Suspect]
     Active Substance: HYDROXYCHLOROQUINE SULFATE
  144. HYDROXYCHLOROQUINE SULFATE [Suspect]
     Active Substance: HYDROXYCHLOROQUINE SULFATE
     Dosage: PATIENT ROA: UNKNOWN
  145. HYDROXYCHLOROQUINE SULFATE [Suspect]
     Active Substance: HYDROXYCHLOROQUINE SULFATE
     Dosage: PATIENT ROA: UNKNOWN
  146. HYDROXYCHLOROQUINE SULFATE [Suspect]
     Active Substance: HYDROXYCHLOROQUINE SULFATE
     Dosage: PATIENT ROA: UNKNOWN
  147. HYDROXYCHLOROQUINE SULFATE [Suspect]
     Active Substance: HYDROXYCHLOROQUINE SULFATE
     Dosage: PATIENT ROA: UNKNOWN
  148. HYDROXYCHLOROQUINE SULFATE [Suspect]
     Active Substance: HYDROXYCHLOROQUINE SULFATE
  149. HYDROXYCHLOROQUINE SULFATE [Suspect]
     Active Substance: HYDROXYCHLOROQUINE SULFATE
  150. HYDROXYCHLOROQUINE SULFATE [Suspect]
     Active Substance: HYDROXYCHLOROQUINE SULFATE
  151. HYDROXYCHLOROQUINE SULFATE [Suspect]
     Active Substance: HYDROXYCHLOROQUINE SULFATE
  152. HYDROXYCHLOROQUINE SULFATE [Suspect]
     Active Substance: HYDROXYCHLOROQUINE SULFATE
     Dosage: PATIENT ROA: UNKNOWN
  153. HYDROXYCHLOROQUINE SULFATE [Suspect]
     Active Substance: HYDROXYCHLOROQUINE SULFATE
  154. HYDROXYCHLOROQUINE SULFATE [Suspect]
     Active Substance: HYDROXYCHLOROQUINE SULFATE
     Dosage: PATIENT ROA: UNKNOWN
  155. HYDROXYCHLOROQUINE SULFATE [Suspect]
     Active Substance: HYDROXYCHLOROQUINE SULFATE
  156. HYDROXYCHLOROQUINE SULFATE [Suspect]
     Active Substance: HYDROXYCHLOROQUINE SULFATE
  157. HYDROXYCHLOROQUINE SULFATE [Suspect]
     Active Substance: HYDROXYCHLOROQUINE SULFATE
     Dosage: PATIENT ROA: UNKNOWN
  158. HYDROXYCHLOROQUINE SULFATE [Suspect]
     Active Substance: HYDROXYCHLOROQUINE SULFATE
  159. INFLIXIMAB [Suspect]
     Active Substance: INFLIXIMAB
     Indication: Rheumatoid arthritis
     Dosage: PATIENT ROA: INTRAVENOUS DRIP
  160. INFLIXIMAB [Suspect]
     Active Substance: INFLIXIMAB
     Indication: Psoriatic arthropathy
  161. INFLIXIMAB [Suspect]
     Active Substance: INFLIXIMAB
     Indication: Rheumatoid arthritis
     Dosage: PATIENT ROA: INTRAVENOUS DRIP
  162. INFLIXIMAB [Suspect]
     Active Substance: INFLIXIMAB
     Indication: Psoriatic arthropathy
     Dosage: PATIENT ROA: UNKNOWN
  163. INFLIXIMAB [Suspect]
     Active Substance: INFLIXIMAB
     Dosage: PATIENT ROA: INTRAVENOUS DRIP
  164. INFLIXIMAB [Suspect]
     Active Substance: INFLIXIMAB
     Dosage: PATIENT ROA: UNKNOWN
  165. ISOPROPYL ALCOHOL [Suspect]
     Active Substance: ISOPROPYL ALCOHOL
     Indication: Product used for unknown indication
     Dosage: DOSE FORM: LIQUID TOPICAL PATIENT ROA: UNKNOWN
  166. LYRICA [Suspect]
     Active Substance: PREGABALIN
     Indication: Product used for unknown indication
     Dosage: PATIENT ROA: UNKNOWN
  167. METHOTREXATE [Suspect]
     Active Substance: METHOTREXATE
     Indication: Rheumatoid arthritis
  168. METHOTREXATE [Suspect]
     Active Substance: METHOTREXATE
     Dosage: PATIENT ROA: UNKNOWN
  169. METHOTREXATE [Suspect]
     Active Substance: METHOTREXATE
  170. METHOTREXATE [Suspect]
     Active Substance: METHOTREXATE
     Dosage: PATIENT ROA: UNKNOWN
  171. METHOTREXATE [Suspect]
     Active Substance: METHOTREXATE
  172. METHOTREXATE [Suspect]
     Active Substance: METHOTREXATE
  173. METHOTREXATE [Suspect]
     Active Substance: METHOTREXATE
  174. METHOTREXATE [Suspect]
     Active Substance: METHOTREXATE
  175. METHOTREXATE [Suspect]
     Active Substance: METHOTREXATE
  176. METHOTREXATE [Suspect]
     Active Substance: METHOTREXATE
  177. METHOTREXATE [Suspect]
     Active Substance: METHOTREXATE
     Dosage: PATIENT ROA: INTRAVENOUS DRIP
  178. METHOTREXATE [Suspect]
     Active Substance: METHOTREXATE
     Dosage: PATIENT ROA: UNKNOWN
  179. METHOTREXATE [Suspect]
     Active Substance: METHOTREXATE
  180. METHOTREXATE [Suspect]
     Active Substance: METHOTREXATE
  181. METHOTREXATE [Suspect]
     Active Substance: METHOTREXATE
     Dosage: PATIENT ROA: UNKNOWN
  182. METHOTREXATE [Suspect]
     Active Substance: METHOTREXATE
  183. METHOTREXATE [Suspect]
     Active Substance: METHOTREXATE
     Dosage: PATIENT ROA: UNKNOWN
  184. METHOTREXATE [Suspect]
     Active Substance: METHOTREXATE
  185. METHOTREXATE [Suspect]
     Active Substance: METHOTREXATE
  186. METHOTREXATE [Suspect]
     Active Substance: METHOTREXATE
  187. METHOTREXATE [Suspect]
     Active Substance: METHOTREXATE
     Dosage: PATIENT ROA: UNKNOWN
  188. METHOTREXATE [Suspect]
     Active Substance: METHOTREXATE
  189. METHOTREXATE [Suspect]
     Active Substance: METHOTREXATE
     Dosage: PTIENT ROA: UNKNOWN
  190. METHOTREXATE [Suspect]
     Active Substance: METHOTREXATE
     Indication: Rheumatoid arthritis
  191. METHOTREXATE [Suspect]
     Active Substance: METHOTREXATE
  192. METHOTREXATE [Suspect]
     Active Substance: METHOTREXATE
     Dosage: PATIENT ROA: INTRAVENOUS DRIP
  193. METHOTREXATE [Suspect]
     Active Substance: METHOTREXATE
  194. METHOTREXATE [Suspect]
     Active Substance: METHOTREXATE
  195. METHOTREXATE [Suspect]
     Active Substance: METHOTREXATE
  196. METHOTREXATE [Suspect]
     Active Substance: METHOTREXATE
     Dosage: PATIENT ROA: UNKNOWN
  197. METHOTREXATE [Suspect]
     Active Substance: METHOTREXATE
  198. METHOTREXATE [Suspect]
     Active Substance: METHOTREXATE
  199. METHOTREXATE [Suspect]
     Active Substance: METHOTREXATE
  200. METHOTREXATE [Suspect]
     Active Substance: METHOTREXATE
     Dosage: PATIENT ROA: UNKNOWN
  201. METHOTREXATE [Suspect]
     Active Substance: METHOTREXATE
  202. METHOTREXATE [Suspect]
     Active Substance: METHOTREXATE
  203. METHOTREXATE [Suspect]
     Active Substance: METHOTREXATE
  204. METHOTREXATE [Suspect]
     Active Substance: METHOTREXATE
  205. METHOTREXATE [Suspect]
     Active Substance: METHOTREXATE
  206. METHOTREXATE [Suspect]
     Active Substance: METHOTREXATE
  207. METHOTREXATE [Suspect]
     Active Substance: METHOTREXATE
     Dosage: PATIENT ROA: UNKNOWN
  208. METHOTREXATE [Suspect]
     Active Substance: METHOTREXATE
     Dosage: PATIENT ROA: UNKNOWN
  209. METHOTREXATE [Suspect]
     Active Substance: METHOTREXATE
     Dosage: PATIENT ROA: INTRAVENOUS DRIP
  210. METHOTREXATE [Suspect]
     Active Substance: METHOTREXATE
  211. METHOTREXATE [Suspect]
     Active Substance: METHOTREXATE
  212. METHOTREXATE [Suspect]
     Active Substance: METHOTREXATE
  213. METHOTREXATE [Suspect]
     Active Substance: METHOTREXATE
  214. METHOTREXATE [Suspect]
     Active Substance: METHOTREXATE
  215. METHOTREXATE [Suspect]
     Active Substance: METHOTREXATE
  216. METHOTREXATE [Suspect]
     Active Substance: METHOTREXATE
  217. METHOTREXATE [Suspect]
     Active Substance: METHOTREXATE
  218. METHOTREXATE [Suspect]
     Active Substance: METHOTREXATE
  219. METHOTREXATE [Suspect]
     Active Substance: METHOTREXATE
  220. METHOTREXATE [Suspect]
     Active Substance: METHOTREXATE
  221. METHOTREXATE [Suspect]
     Active Substance: METHOTREXATE
  222. METHOTREXATE [Suspect]
     Active Substance: METHOTREXATE
  223. METHOTREXATE [Suspect]
     Active Substance: METHOTREXATE
     Dosage: PATIENT ROA: UNKNOWN
  224. METHOTREXATE [Suspect]
     Active Substance: METHOTREXATE
  225. METHOTREXATE [Suspect]
     Active Substance: METHOTREXATE
  226. METHOTREXATE [Suspect]
     Active Substance: METHOTREXATE
     Dosage: PATIENT ROA: UNKNOWN
  227. METHOTREXATE [Suspect]
     Active Substance: METHOTREXATE
  228. METHOTREXATE [Suspect]
     Active Substance: METHOTREXATE
     Dosage: PATIENT ROA: UNKNOWN
  229. METHOTREXATE [Suspect]
     Active Substance: METHOTREXATE
  230. METHOTREXATE [Suspect]
     Active Substance: METHOTREXATE
  231. METHOTREXATE [Suspect]
     Active Substance: METHOTREXATE
  232. METHYLPREDNISOLONE SODIUM SUCCINATE [Suspect]
     Active Substance: METHYLPREDNISOLONE SODIUM SUCCINATE
     Indication: Product used for unknown indication
     Dosage: PATIENT ROA: UNKNOWN
  233. ORENCIA [Suspect]
     Active Substance: ABATACEPT
     Indication: Rheumatoid arthritis
  234. ORENCIA [Suspect]
     Active Substance: ABATACEPT
     Indication: Psoriatic arthropathy
  235. ORENCIA [Suspect]
     Active Substance: ABATACEPT
  236. ORENCIA [Suspect]
     Active Substance: ABATACEPT
  237. ORENCIA [Suspect]
     Active Substance: ABATACEPT
  238. ORENCIA [Suspect]
     Active Substance: ABATACEPT
  239. ORENCIA [Suspect]
     Active Substance: ABATACEPT
     Indication: Rheumatoid arthritis
  240. ORENCIA [Suspect]
     Active Substance: ABATACEPT
     Indication: Psoriatic arthropathy
  241. OXYCODONE TEREPHTHALATE [Suspect]
     Active Substance: OXYCODONE TEREPHTHALATE
     Indication: Product used for unknown indication
     Dosage: PATIENT ROA: UNKNOWN
  242. PERIOGARD [Suspect]
     Active Substance: CHLORHEXIDINE GLUCONATE
     Indication: Product used for unknown indication
  243. PERIOGARD [Suspect]
     Active Substance: CHLORHEXIDINE GLUCONATE
     Dosage: PATIENT ROA: UNKNOWN
  244. PERIOGARD [Suspect]
     Active Substance: CHLORHEXIDINE GLUCONATE
     Dosage: PATIENT ROA: UNKNOWN
  245. PERIOGARD [Suspect]
     Active Substance: CHLORHEXIDINE GLUCONATE
  246. PLAQUENIL [Suspect]
     Active Substance: HYDROXYCHLOROQUINE SULFATE
     Indication: Product used for unknown indication
     Dosage: PATIENT ROA: UNKNOWN
  247. PREDNISOLONE [Suspect]
     Active Substance: PREDNISOLONE
     Indication: Product used for unknown indication
     Dosage: PATIENT ROA: UNKNOWN
  248. PSEUDOEPHEDRINE [Suspect]
     Active Substance: PSEUDOEPHEDRINE
     Indication: Product used for unknown indication
     Dosage: PATIENT ROA: UNKNOWN
  249. RAMIPRIL [Suspect]
     Active Substance: RAMIPRIL
     Indication: Product used for unknown indication
     Dosage: PATIENT ROA: UNKNOWN
  250. RAMIPRIL [Suspect]
     Active Substance: RAMIPRIL
     Dosage: PATIENT ROA: UNKNOWN
  251. CETIRIZINE HYDROCHLORIDE [Suspect]
     Active Substance: CETIRIZINE HYDROCHLORIDE
     Indication: Urticaria
  252. CETIRIZINE HYDROCHLORIDE [Suspect]
     Active Substance: CETIRIZINE HYDROCHLORIDE
     Indication: Rheumatoid arthritis
     Dosage: PATIENT ROA: UNKNOWN
  253. CETIRIZINE HYDROCHLORIDE [Suspect]
     Active Substance: CETIRIZINE HYDROCHLORIDE
     Dosage: PATIENT ROA: UNKNOWN
  254. CETIRIZINE HYDROCHLORIDE [Suspect]
     Active Substance: CETIRIZINE HYDROCHLORIDE
  255. CETIRIZINE HYDROCHLORIDE [Suspect]
     Active Substance: CETIRIZINE HYDROCHLORIDE
  256. CETIRIZINE HYDROCHLORIDE [Suspect]
     Active Substance: CETIRIZINE HYDROCHLORIDE
     Dosage: PATIENT ROA: UNKNOWN
  257. CETIRIZINE HYDROCHLORIDE [Suspect]
     Active Substance: CETIRIZINE HYDROCHLORIDE
  258. CETIRIZINE HYDROCHLORIDE\PSEUDOEPHEDRINE HYDROCHLORIDE [Suspect]
     Active Substance: CETIRIZINE HYDROCHLORIDE\PSEUDOEPHEDRINE HYDROCHLORIDE
     Indication: Product used for unknown indication
     Dosage: PATIENT ROA: UNKNOWN, DOSE FORM: TABLET (EXTENDED- RELEASE)
  259. REMICADE [Suspect]
     Active Substance: INFLIXIMAB
     Indication: Rheumatoid arthritis
  260. DICLOFENAC SODIUM [Suspect]
     Active Substance: DICLOFENAC SODIUM
     Indication: Rheumatoid arthritis
     Dosage: PATIENT ROA: UNKNOWN
  261. HYDROCORTISONE [Suspect]
     Active Substance: HYDROCORTISONE
     Indication: Rheumatoid arthritis
  262. PANTOPRAZOLE SODIUM [Suspect]
     Active Substance: PANTOPRAZOLE SODIUM
     Indication: Product used for unknown indication
     Dosage: DOSE FORM: TABLET (DELAYED- RELEASE) PATIENT ROA: UNKNOWN
  263. PREGABALIN [Suspect]
     Active Substance: PREGABALIN
     Indication: Product used for unknown indication
     Dosage: PATIENT ROA: UNKNOWN
  264. SIMPONI [Suspect]
     Active Substance: GOLIMUMAB
     Indication: Rheumatoid arthritis
     Dosage: DOSE FORM: SOLUTION SUBCUTANEOUS PATIENT ROA: UNKNOWN
  265. SULFASALAZINE [Suspect]
     Active Substance: SULFASALAZINE
     Indication: Rheumatoid arthritis
     Dosage: PATIENT ROA: UNKNOWN
  266. SULFASALAZINE [Suspect]
     Active Substance: SULFASALAZINE
     Indication: Rheumatoid arthritis
  267. SULFASALAZINE [Suspect]
     Active Substance: SULFASALAZINE
     Dosage: PATIENT ROA: UNKNOWN
  268. SULFASALAZINE [Suspect]
     Active Substance: SULFASALAZINE
     Dosage: PATIENT ROA: UNKNOWN
  269. SULFASALAZINE [Suspect]
     Active Substance: SULFASALAZINE
     Dosage: PATIENT ROA: UNKNOWN
  270. SULFASALAZINE [Suspect]
     Active Substance: SULFASALAZINE
     Dosage: PATIENT ROA: UNKNOWN
  271. SULFASALAZINE [Suspect]
     Active Substance: SULFASALAZINE
  272. SULFASALAZINE [Suspect]
     Active Substance: SULFASALAZINE
  273. SULFASALAZINE [Suspect]
     Active Substance: SULFASALAZINE
  274. SULFASALAZINE [Suspect]
     Active Substance: SULFASALAZINE
  275. SULFASALAZINE [Suspect]
     Active Substance: SULFASALAZINE
  276. SULFASALAZINE [Suspect]
     Active Substance: SULFASALAZINE
  277. SULFASALAZINE [Suspect]
     Active Substance: SULFASALAZINE
  278. SULFASALAZINE [Suspect]
     Active Substance: SULFASALAZINE
  279. SULFASALAZINE [Suspect]
     Active Substance: SULFASALAZINE
     Dosage: PATIENT ROA: UNKNOWN
  280. SULFASALAZINE [Suspect]
     Active Substance: SULFASALAZINE
  281. SULFASALAZINE [Suspect]
     Active Substance: SULFASALAZINE
     Dosage: PATIENT ROA: UNKNOWN
  282. SULFASALAZINE [Suspect]
     Active Substance: SULFASALAZINE
  283. SULFASALAZINE [Suspect]
     Active Substance: SULFASALAZINE
  284. SULFASALAZINE [Suspect]
     Active Substance: SULFASALAZINE
  285. SULFASALAZINE [Suspect]
     Active Substance: SULFASALAZINE
  286. SULFASALAZINE [Suspect]
     Active Substance: SULFASALAZINE
  287. SULFASALAZINE [Suspect]
     Active Substance: SULFASALAZINE
  288. SULFASALAZINE [Suspect]
     Active Substance: SULFASALAZINE
  289. SULFASALAZINE [Suspect]
     Active Substance: SULFASALAZINE
  290. SULFASALAZINE [Suspect]
     Active Substance: SULFASALAZINE
  291. SULFASALAZINE [Suspect]
     Active Substance: SULFASALAZINE
  292. SULFASALAZINE [Suspect]
     Active Substance: SULFASALAZINE
  293. SULFASALAZINE [Suspect]
     Active Substance: SULFASALAZINE
  294. PREDNISONE [Suspect]
     Active Substance: PREDNISONE
     Indication: Rheumatoid arthritis
  295. XELJANZ [Suspect]
     Active Substance: TOFACITINIB CITRATE
     Indication: Rheumatoid arthritis
     Dosage: PATIENT ROA: UNKNOWN
  296. XELJANZ [Suspect]
     Active Substance: TOFACITINIB CITRATE
     Indication: Rheumatoid arthritis
  297. XELJANZ [Suspect]
     Active Substance: TOFACITINIB CITRATE
     Dosage: PATIENT ROA: UNKNOWN
  298. XELJANZ [Suspect]
     Active Substance: TOFACITINIB CITRATE
     Dosage: PATIENT ROA: UNKNOWN
  299. XELJANZ [Suspect]
     Active Substance: TOFACITINIB CITRATE
     Dosage: PATIENT ROA: UNKNOWN
  300. XELJANZ [Suspect]
     Active Substance: TOFACITINIB CITRATE
     Dosage: PATIENT ROA: UNKNOWN
  301. XELJANZ [Suspect]
     Active Substance: TOFACITINIB CITRATE
  302. IBUPROFEN [Suspect]
     Active Substance: IBUPROFEN
     Indication: Product used for unknown indication
     Dosage: PATIENT ROA: UNKNOWN
  303. DICLOFENAC POTASSIUM [Suspect]
     Active Substance: DICLOFENAC POTASSIUM
     Indication: Product used for unknown indication
  304. DICLOFENAC POTASSIUM [Suspect]
     Active Substance: DICLOFENAC POTASSIUM
     Dosage: PATIENT ROA: OTHER
  305. DICLOFENAC POTASSIUM [Suspect]
     Active Substance: DICLOFENAC POTASSIUM
     Dosage: PATIENT ROA: UNKNOWN
  306. DICLOFENAC POTASSIUM [Suspect]
     Active Substance: DICLOFENAC POTASSIUM

REACTIONS (12)
  - Lupus-like syndrome [Fatal]
  - Gait inability [Fatal]
  - Migraine [Fatal]
  - Malaise [Fatal]
  - Muscle spasms [Fatal]
  - Myositis [Fatal]
  - Muscle injury [Fatal]
  - Night sweats [Fatal]
  - Lung disorder [Fatal]
  - Nasopharyngitis [Fatal]
  - Musculoskeletal pain [Fatal]
  - Musculoskeletal stiffness [Fatal]
